FAERS Safety Report 5148279-5 (Version None)
Quarter: 2006Q4

REPORT INFORMATION
  Report Type: 
  Country: None (occurrence: None)
  Receive Date: 20061107
  Receipt Date: 20061030
  Transmission Date: 20070319
  Serious: Yes (Death, Life-Threatening)
  Sender: FDA-Public Use
  Company Number: 2006-147767-NL

PATIENT
  Age: 17 Year
  Sex: Male

DRUGS (9)
  1. DANAPAROID SODIUM [Suspect]
     Indication: DISSEMINATED INTRAVASCULAR COAGULATION
     Dosage: 1250 ANTI_XA BID INTRAVENOUS DRIP
     Route: 041
     Dates: start: 20030930, end: 20031004
  2. DOPAMINE HCL [Concomitant]
  3. CEFPIROME SULFATE [Concomitant]
  4. ANTITHROMBIN III [Concomitant]
  5. FAMOTIDINE [Concomitant]
  6. METHYLPREDNISOLONE SODIUM SUCCINATE [Concomitant]
  7. ULINASTATIN [Concomitant]
  8. OMEPRAZOLE [Concomitant]
  9. GABEXATE MESILATE [Concomitant]

REACTIONS (4)
  - ACTIVATED PARTIAL THROMBOPLASTIN TIME PROLONGED [None]
  - CONDITION AGGRAVATED [None]
  - GASTROINTESTINAL HAEMORRHAGE [None]
  - MULTI-ORGAN FAILURE [None]
